FAERS Safety Report 4808974-1 (Version None)
Quarter: 2005Q4

REPORT INFORMATION
  Report Type: 
  Country: None (occurrence: None)
  Receive Date: 20051021
  Receipt Date: 20030717
  Transmission Date: 20060501
  Serious: No
  Sender: FDA-Public Use
  Company Number: AU_030706493

PATIENT
  Sex: Female

DRUGS (2)
  1. ZYPREXA [Suspect]
     Indication: SCHIZOPHRENIA
     Dosage: 10 MG/DAY
     Route: 048
     Dates: start: 20030601
  2. CARBAMAZEPINE [Concomitant]

REACTIONS (2)
  - NEUTROPENIA [None]
  - PHARYNGOLARYNGEAL PAIN [None]
